FAERS Safety Report 19424006 (Version 1)
Quarter: 2021Q2

REPORT INFORMATION
  Report Type: Spontaneous
  Country: US (occurrence: US)
  Receive Date: 20210616
  Receipt Date: 20210616
  Transmission Date: 20210717
  Serious: No
  Sender: FDA-Public Use
  Company Number: US-GILEAD-2021-0534848

PATIENT
  Age: 33 Year

DRUGS (1)
  1. STRIBILD [Suspect]
     Active Substance: COBICISTAT\ELVITEGRAVIR\EMTRICITABINE\TENOFOVIR DISOPROXIL FUMARATE
     Indication: PRODUCT USED FOR UNKNOWN INDICATION
     Dosage: UNK
     Route: 065
     Dates: start: 2013

REACTIONS (6)
  - Bone loss [Not Recovered/Not Resolved]
  - Tooth loss [Unknown]
  - Lip injury [Not Recovered/Not Resolved]
  - Eating disorder [Not Recovered/Not Resolved]
  - Tooth fracture [Unknown]
  - Dentofacial functional disorder [Not Recovered/Not Resolved]
